FAERS Safety Report 23382272 (Version 11)
Quarter: 2024Q3

REPORT INFORMATION
  Report Type: Spontaneous
  Country: US (occurrence: US)
  Receive Date: 20240109
  Receipt Date: 20240919
  Transmission Date: 20241017
  Serious: Yes (Other)
  Sender: ACORDA
  Company Number: US-ACORDA-ACO_176147_2024

PATIENT
  Age: 54 Year
  Sex: Female

DRUGS (7)
  1. INBRIJA [Suspect]
     Active Substance: LEVODOPA
     Indication: Parkinson^s disease
     Dosage: 2 DOSAGE FORM (84 MILLIGRAM TOTAL), TID
     Dates: start: 20240117
  2. INBRIJA [Suspect]
     Active Substance: LEVODOPA
     Indication: On and off phenomenon
     Dosage: 2 DOSAGE FORM, PRN
     Dates: start: 20240117
  3. GOCOVRI [Concomitant]
     Active Substance: AMANTADINE
     Indication: Product used for unknown indication
     Dosage: 137 MILLIGRAM
     Route: 065
  4. VITAMINS NOS [Concomitant]
     Active Substance: VITAMINS
     Indication: Product used for unknown indication
     Dosage: FOR ADULTS
     Route: 065
  5. RYTARY [Concomitant]
     Active Substance: CARBIDOPA\LEVODOPA
     Indication: Product used for unknown indication
     Dosage: 195 MILLIGRAM
     Route: 065
  6. CBD KINGS [Concomitant]
     Indication: Product used for unknown indication
     Dosage: UNK, WITH IDOCAINE
     Route: 065
  7. SINEMET CR [Concomitant]
     Active Substance: CARBIDOPA\LEVODOPA
     Indication: Product used for unknown indication
     Dosage: UNK
     Route: 065

REACTIONS (20)
  - Pulmonary congestion [Unknown]
  - Sinus congestion [Unknown]
  - Lip dry [Not Recovered/Not Resolved]
  - Chapped lips [Not Recovered/Not Resolved]
  - Dry throat [Unknown]
  - Muscle spasticity [Unknown]
  - Skin discolouration [Not Recovered/Not Resolved]
  - Illness [Unknown]
  - Sleep disorder [Not Recovered/Not Resolved]
  - Accidental underdose [Not Recovered/Not Resolved]
  - Product physical issue [Unknown]
  - Device difficult to use [Unknown]
  - Constipation [Unknown]
  - Dry mouth [Not Recovered/Not Resolved]
  - Fatigue [Not Recovered/Not Resolved]
  - Somnolence [Unknown]
  - Nasopharyngitis [Unknown]
  - Cough [Unknown]
  - Sputum discoloured [Unknown]
  - Dyskinesia [Not Recovered/Not Resolved]

NARRATIVE: CASE EVENT DATE: 20240322
